FAERS Safety Report 5554522-0 (Version None)
Quarter: 2007Q4

REPORT INFORMATION
  Report Type: 
  Country: None (occurrence: None)
  Receive Date: 20071210
  Receipt Date: 20071210
  Transmission Date: 20080405
  Serious: No
  Sender: FDA-Public Use
  Company Number: None

PATIENT
  Sex: Female

DRUGS (2)
  1. DEPO-PROVERA [Suspect]
     Indication: CONTRACEPTION
     Dosage: 150MG/1ML EVERY 3 MONTHS IM
     Route: 030
     Dates: start: 20070725
  2. DEPO-PROVERA [Suspect]
     Indication: CONTRACEPTION
     Dosage: 150MG/1ML EVERY 3 MONTHS IM
     Route: 030
     Dates: start: 20071016

REACTIONS (1)
  - PREGNANCY WITH INJECTABLE CONTRACEPTIVE [None]
